FAERS Safety Report 15830179 (Version 1)
Quarter: 2019Q1

REPORT INFORMATION
  Report Type: Spontaneous
  Country: US (occurrence: US)
  Receive Date: 20190115
  Receipt Date: 20190115
  Transmission Date: 20190417
  Serious: No
  Sender: FDA-Public Use
  Company Number: US-REGENERON PHARMACEUTICALS, INC.-2018-29221

PATIENT

DRUGS (3)
  1. LISINOPRIL. [Concomitant]
     Active Substance: LISINOPRIL
     Indication: HYPERTENSION
  2. VALSARTAN. [Concomitant]
     Active Substance: VALSARTAN
     Indication: HYPERTENSION
  3. EYLEA [Suspect]
     Active Substance: AFLIBERCEPT
     Indication: MACULAR DEGENERATION
     Dosage: UNK

REACTIONS (4)
  - Cataract [Unknown]
  - Walking aid user [Unknown]
  - Anxiety [Unknown]
  - Blood pressure increased [Unknown]
